FAERS Safety Report 24259839 (Version 1)
Quarter: 2024Q3

REPORT INFORMATION
  Report Type: Spontaneous
  Country: DK (occurrence: DK)
  Receive Date: 20240828
  Receipt Date: 20240828
  Transmission Date: 20241017
  Serious: Yes (Other)
  Sender: TEVA
  Company Number: None

PATIENT
  Age: 29 Year
  Sex: Female
  Weight: 68 kg

DRUGS (2)
  1. METRONIDAZOLE [Suspect]
     Active Substance: METRONIDAZOLE
     Indication: Periodontitis
     Dosage: METRONIDAZOL ^ACTAVIS^
     Route: 048
     Dates: start: 20231020, end: 20231023
  2. MIRTAZAPINE [Concomitant]
     Active Substance: MIRTAZAPINE
     Indication: Depression
     Route: 048
     Dates: start: 20201101

REACTIONS (9)
  - Liver injury [Recovered/Resolved]
  - Chromaturia [Recovered/Resolved]
  - Fatigue [Recovering/Resolving]
  - Dizziness [Unknown]
  - Vision blurred [Recovering/Resolving]
  - Malaise [Recovering/Resolving]
  - Faeces discoloured [Unknown]
  - Pyrexia [Recovered/Resolved]
  - Nausea [Recovering/Resolving]

NARRATIVE: CASE EVENT DATE: 20231021
